FAERS Safety Report 6896002-6 (Version None)
Quarter: 2010Q3

REPORT INFORMATION
  Report Type: 
  Country: None (occurrence: None)
  Receive Date: 20100802
  Receipt Date: 20100721
  Transmission Date: 20110219
  Serious: Yes (Hospitalization)
  Sender: FDA-Public Use
  Company Number: A0733470A

PATIENT
  Age: 47 Year
  Sex: Female
  Weight: 137.3 kg

DRUGS (1)
  1. AVANDIA [Suspect]
     Dosage: 16MG PER DAY
     Route: 048
     Dates: start: 20030101, end: 20060801

REACTIONS (4)
  - ASTHENIA [None]
  - CHEST PAIN [None]
  - FATIGUE [None]
  - MYOCARDIAL INFARCTION [None]
